FAERS Safety Report 20352984 (Version 1)
Quarter: 2022Q1

REPORT INFORMATION
  Report Type: Spontaneous
  Country: US (occurrence: None)
  Receive Date: 20220118
  Receipt Date: 20220118
  Transmission Date: 20220423
  Serious: Yes (Disabling, Other)
  Sender: FDA-Public Use
  Company Number: None

PATIENT
  Age: 54 Year
  Sex: Female
  Weight: 61 kg

DRUGS (9)
  1. OXYMORPHONE [Suspect]
     Active Substance: OXYMORPHONE
     Indication: Radiculopathy
     Dosage: OTHER QUANTITY : 1 CAPSULE(S);?FREQUENCY : EVERY 6 HOURS;?
     Route: 048
     Dates: start: 20220115
  2. BUPROPION [Concomitant]
  3. LYRICA [Concomitant]
     Active Substance: PREGABALIN
  4. SCOPOLAMINE [Concomitant]
     Active Substance: SCOPOLAMINE
  5. ZTLIDO [Concomitant]
     Active Substance: LIDOCAINE
  6. OXYMORPHONE [Concomitant]
     Active Substance: OXYMORPHONE
  7. PEPCID [Concomitant]
     Active Substance: FAMOTIDINE
  8. VITAMIN C [Concomitant]
     Active Substance: ASCORBIC ACID
  9. VITAMIN D [Concomitant]
     Active Substance: VITAMIN D NOS

REACTIONS (4)
  - Bladder pain [None]
  - Headache [None]
  - Nausea [None]
  - Inadequate analgesia [None]

NARRATIVE: CASE EVENT DATE: 20220116
